FAERS Safety Report 7252589-5 (Version None)
Quarter: 2011Q1

REPORT INFORMATION
  Report Type: 
  Country: None (occurrence: None)
  Receive Date: 20110129
  Receipt Date: 20100409
  Transmission Date: 20110831
  Serious: No
  Sender: FDA-Public Use
  Company Number: US-ABBOTT-10P-163-0637363-00

PATIENT
  Age: 53 Year
  Sex: Female

DRUGS (2)
  1. FELODIPINE [Concomitant]
     Indication: PRODUCT USED FOR UNKNOWN INDICATION
  2. HUMIRA [Suspect]
     Indication: CROHN'S DISEASE
     Dosage: WILL BE DOING 40MG Q2WEEKS, MEDICATION WAS ONGOING.
     Route: 058
     Dates: start: 20100325, end: 20100325

REACTIONS (1)
  - HEADACHE [None]
